FAERS Safety Report 8598241-5 (Version None)
Quarter: 2012Q3

REPORT INFORMATION
  Report Type: 
  Country: None (occurrence: None)
  Receive Date: 20120816
  Receipt Date: 20120813
  Transmission Date: 20120928
  Serious: Yes (Death)
  Sender: FDA-Public Use
  Company Number: US-CELGENEUS-163-21880-12080772

PATIENT
  Sex: Male
  Weight: 75.818 kg

DRUGS (17)
  1. OXYCONTIN [Concomitant]
     Indication: PAIN
     Dosage: 40 MILLIGRAM
     Route: 065
  2. ACYCLOVIR [Concomitant]
     Indication: PROPHYLAXIS
     Dosage: 200 MILLIGRAM
     Route: 065
  3. LIDODERM [Concomitant]
     Indication: PAIN
     Dosage: 5 PERCENT
     Route: 065
  4. OXYCODONE [Concomitant]
     Indication: PAIN
     Dosage: 30 MILLIGRAM
     Route: 065
  5. AMBIEN [Concomitant]
     Dosage: 10 MILLIGRAM
     Route: 065
  6. BACTRIM DS [Concomitant]
     Indication: PROPHYLAXIS
     Route: 065
  7. FAMVIR [Concomitant]
     Indication: PROPHYLAXIS
     Route: 065
  8. ALLOPURINOL [Concomitant]
     Indication: GOUT
     Dosage: 300 MILLIGRAM
     Route: 065
  9. REVLIMID [Suspect]
     Dosage: 5 MILLIGRAM
     Route: 048
     Dates: start: 20120728, end: 20120804
  10. LANTUS [Concomitant]
     Indication: DIABETES MELLITUS
     Dosage: 60 UNITS
     Route: 065
  11. FENTANYL [Concomitant]
     Indication: PAIN
     Dosage: 25 MICROGRAM
     Route: 065
  12. VALIUM [Concomitant]
     Dosage: 10 MILLIGRAM
     Route: 065
  13. VITAMIN D [Concomitant]
     Dosage: 5000 IU (INTERNATIONAL UNIT)
     Route: 065
  14. OMEPRAZOLE [Concomitant]
     Dosage: 25 MILLIGRAM
     Route: 065
  15. FLOMAX [Concomitant]
     Dosage: .4 MILLIGRAM
     Route: 065
  16. MULTI-VITAMIN [Concomitant]
     Route: 065
  17. HUMALOG [Concomitant]
     Indication: DIABETES MELLITUS
     Dosage: PER SLIDING SCALE
     Route: 065

REACTIONS (1)
  - CHRONIC LYMPHOCYTIC LEUKAEMIA [None]
